FAERS Safety Report 19737476 (Version 1)
Quarter: 2021Q3

REPORT INFORMATION
  Report Type: Spontaneous
  Country: US (occurrence: US)
  Receive Date: 20210824
  Receipt Date: 20210824
  Transmission Date: 20211014
  Serious: Yes (Other)
  Sender: FDA-Public Use
  Company Number: NVSC2021US184207

PATIENT
  Sex: Female

DRUGS (4)
  1. PAZOPANIB [Suspect]
     Active Substance: PAZOPANIB
     Indication: INFLAMMATORY CARCINOMA OF THE BREAST
     Dosage: 800 MG
     Route: 065
  2. PAZOPANIB [Suspect]
     Active Substance: PAZOPANIB
     Indication: BREAST CANCER METASTATIC
  3. EVEROLIMUS. [Suspect]
     Active Substance: EVEROLIMUS
     Indication: BREAST CANCER METASTATIC
     Dosage: UNK
     Route: 065
  4. EVEROLIMUS. [Suspect]
     Active Substance: EVEROLIMUS
     Indication: INFLAMMATORY CARCINOMA OF THE BREAST

REACTIONS (4)
  - Malignant neoplasm progression [Unknown]
  - Inflammatory carcinoma of the breast [Unknown]
  - Breast cancer metastatic [Unknown]
  - Product use in unapproved indication [Unknown]
